FAERS Safety Report 9813503 (Version 1)
Quarter: 2014Q1

REPORT INFORMATION
  Report Type: Spontaneous
  Country: US (occurrence: None)
  Receive Date: 20140110
  Receipt Date: 20140110
  Transmission Date: 20141002
  Serious: Yes (Other)
  Sender: FDA-Public Use
  Company Number: None

PATIENT
  Age: 66 Year
  Sex: Female
  Weight: 71.67 kg

DRUGS (1)
  1. VENLAFAXINE [Suspect]
     Indication: MAJOR DEPRESSION
     Dosage: 1 CAPSULE
     Route: 048

REACTIONS (5)
  - Dizziness [None]
  - Tinnitus [None]
  - Dizziness [None]
  - Product substitution issue [None]
  - Therapeutic response unexpected with drug substitution [None]
